FAERS Safety Report 10648644 (Version 1)
Quarter: 2014Q4

REPORT INFORMATION
  Report Type: Spontaneous
  Country: US (occurrence: US)
  Receive Date: 20141212
  Receipt Date: 20141212
  Transmission Date: 20150529
  Serious: No
  Sender: FDA-Public Use
  Company Number: US-BAYER-2014-175630

PATIENT
  Sex: Male

DRUGS (7)
  1. PROBIOTICA [Concomitant]
     Active Substance: PROBIOTICS NOS
     Dosage: 1 DF, BID
  2. AFINITOR [Concomitant]
     Active Substance: EVEROLIMUS
     Dosage: 5 MG DAILY
  3. AFINITOR [Concomitant]
     Active Substance: EVEROLIMUS
     Dosage: 10 MG DAILY
  4. CIPRO [Suspect]
     Active Substance: CIPROFLOXACIN HYDROCHLORIDE
  5. REDOXON MULTIVITAMIN 1 [Concomitant]
  6. ASPIRIN. [Concomitant]
     Active Substance: ASPIRIN
     Dosage: 81 MG, QD
  7. OMEGA 3 [Concomitant]
     Active Substance: OMEGA-3 FATTY ACIDS
     Dosage: 350 MG, QD

REACTIONS (1)
  - Drug hypersensitivity [None]
